FAERS Safety Report 6110663-0 (Version None)
Quarter: 2009Q1

REPORT INFORMATION
  Report Type: 
  Country: None (occurrence: None)
  Receive Date: 20090310
  Receipt Date: 20090302
  Transmission Date: 20090719
  Serious: Yes (Other)
  Sender: FDA-Public Use
  Company Number: US-GENENTECH-256757

PATIENT
  Sex: Female

DRUGS (14)
  1. XOLAIR [Suspect]
     Indication: ASTHMA
     Dosage: 150 MG, Q2W
     Route: 030
     Dates: start: 20060811
  2. ALLEGRA [Concomitant]
     Indication: RHINITIS ALLERGIC
     Dosage: 180 UNK, QAM
     Route: 048
  3. ASTELIN [Concomitant]
     Indication: RHINITIS ALLERGIC
     Dosage: 2 UNK, BID
     Route: 045
  4. BIAXIN [Concomitant]
     Indication: DRUG USE FOR UNKNOWN INDICATION
     Dosage: 500 UNK, QD
     Route: 048
  5. FLONASE [Concomitant]
     Indication: RHINITIS ALLERGIC
     Dosage: 2 UNK, QAM
     Route: 045
  6. FORADIL [Concomitant]
     Indication: ASTHMA
     Dosage: 1 PUFF, BID
  7. QVAR 40 [Concomitant]
     Indication: ASTHMA
     Dosage: 5 PUFF, BID
  8. PREDNISONE [Concomitant]
     Indication: DRUG USE FOR UNKNOWN INDICATION
     Dosage: 40 MG, UNK
     Route: 048
  9. PROAIR HFA [Concomitant]
     Indication: ASTHMA
     Dosage: 2 PUFF, Q4H
  10. SPIRIVA [Concomitant]
     Indication: ASTHMA
     Dosage: 1 PUFF, QPM
  11. UNIPHYL [Concomitant]
     Indication: ASTHMA
     Dosage: 400 MG, QPM
     Route: 048
  12. VOSPIRE ER [Concomitant]
     Indication: DRUG USE FOR UNKNOWN INDICATION
     Dosage: 4 MG, UNK
     Route: 048
  13. ZYFLO CR [Concomitant]
     Indication: ASTHMA
     Dosage: 600 MG, BID
     Route: 048
  14. ZYRTEC [Concomitant]
     Indication: RHINITIS ALLERGIC
     Dosage: 10 MG, QPM
     Route: 048

REACTIONS (4)
  - ANAPHYLACTIC REACTION [None]
  - CHEST DISCOMFORT [None]
  - RASH [None]
  - URTICARIA [None]
